FAERS Safety Report 15213533 (Version 1)
Quarter: 2018Q3

REPORT INFORMATION
  Report Type: Report from Study
  Country: VN (occurrence: VN)
  Receive Date: 20180730
  Receipt Date: 20180730
  Transmission Date: 20181010
  Serious: Yes (Hospitalization)
  Sender: FDA-Public Use
  Company Number: VN-SA-2018SA182142

PATIENT
  Age: 67 Year
  Sex: Male
  Weight: 64 kg

DRUGS (3)
  1. RIFAMPICIN [Suspect]
     Active Substance: RIFAMPIN
     Indication: PULMONARY TUBERCULOSIS
     Dosage: 1 DF, QD
     Dates: start: 20180604, end: 20180617
  2. PYRAZINAMIDE. [Suspect]
     Active Substance: PYRAZINAMIDE
  3. ISONIAZID. [Suspect]
     Active Substance: ISONIAZID

REACTIONS (1)
  - Fatigue [Recovered/Resolved]

NARRATIVE: CASE EVENT DATE: 20180604
